FAERS Safety Report 15955263 (Version 1)
Quarter: 2019Q1

REPORT INFORMATION
  Report Type: Spontaneous
  Country: BR (occurrence: BR)
  Receive Date: 20190213
  Receipt Date: 20190213
  Transmission Date: 20190417
  Serious: Yes (Other)
  Sender: FDA-Public Use
  Company Number: BR-ROCHE-2262860

PATIENT
  Age: 64 Year
  Sex: Female

DRUGS (4)
  1. LEXOTAN [Suspect]
     Active Substance: BROMAZEPAM
     Indication: PRODUCT USED FOR UNKNOWN INDICATION
     Route: 065
  2. RIVOTRIL [Suspect]
     Active Substance: CLONAZEPAM
     Indication: PRODUCT USED FOR UNKNOWN INDICATION
     Route: 065
  3. LORAX (BRAZIL) [Suspect]
     Active Substance: LORAZEPAM
     Indication: PRODUCT USED FOR UNKNOWN INDICATION
     Dosage: 40 YEARS
     Route: 065
  4. LORAX (BRAZIL) [Suspect]
     Active Substance: LORAZEPAM
     Route: 065

REACTIONS (2)
  - Malaise [Unknown]
  - Suicidal ideation [Unknown]
